FAERS Safety Report 21546009 (Version 3)
Quarter: 2022Q4

REPORT INFORMATION
  Report Type: Spontaneous
  Country: JP (occurrence: JP)
  Receive Date: 20221103
  Receipt Date: 20221227
  Transmission Date: 20230113
  Serious: Yes (Hospitalization)
  Sender: FDA-Public Use
  Company Number: JP-JNJFOC-20221103449

PATIENT
  Age: 47 Year
  Sex: Female
  Weight: 54 kg

DRUGS (6)
  1. TREMFYA [Suspect]
     Active Substance: GUSELKUMAB
     Indication: Palmoplantar pustulosis
     Route: 058
     Dates: start: 20220531, end: 20220823
  2. TREMFYA [Suspect]
     Active Substance: GUSELKUMAB
     Indication: Pustulotic arthro-osteitis
     Route: 058
     Dates: start: 20221110
  3. TREMFYA [Suspect]
     Active Substance: GUSELKUMAB
  4. ACETAMINOPHEN\TRAMADOL HYDROCHLORIDE [Concomitant]
     Active Substance: ACETAMINOPHEN\TRAMADOL HYDROCHLORIDE
     Indication: Procedural pain
     Route: 048
  5. CELECOXIB [Concomitant]
     Active Substance: CELECOXIB
     Indication: Procedural pain
     Route: 048
  6. LYRICA [Concomitant]
     Active Substance: PREGABALIN
     Indication: Procedural pain
     Route: 048

REACTIONS (3)
  - Pyelonephritis [Recovered/Resolved]
  - Tooth abscess [Recovered/Resolved]
  - Periodontal disease [Unknown]

NARRATIVE: CASE EVENT DATE: 20220101
